FAERS Safety Report 25682737 (Version 1)
Quarter: 2025Q3

REPORT INFORMATION
  Report Type: Spontaneous
  Country: CN (occurrence: CN)
  Receive Date: 20250814
  Receipt Date: 20250814
  Transmission Date: 20251021
  Serious: Yes (Other)
  Sender: PFIZER
  Company Number: CN-PFIZER INC-PV202500097698

PATIENT
  Age: 78 Year
  Sex: Male
  Weight: 55 kg

DRUGS (2)
  1. LINEZOLID [Suspect]
     Active Substance: LINEZOLID
     Indication: Chronic obstructive pulmonary disease
     Dosage: 600 MG, 1X/DAY
     Route: 048
     Dates: start: 20250720, end: 20250802
  2. LINEZOLID [Suspect]
     Active Substance: LINEZOLID
     Indication: Lower respiratory tract infection

REACTIONS (3)
  - Platelet count decreased [Recovered/Resolved]
  - Vessel puncture site haemorrhage [Unknown]
  - Off label use [Unknown]

NARRATIVE: CASE EVENT DATE: 20250720
